FAERS Safety Report 6220415-9 (Version None)
Quarter: 2009Q2

REPORT INFORMATION
  Report Type: 
  Country: None (occurrence: None)
  Receive Date: 20090610
  Receipt Date: 20071023
  Transmission Date: 20091009
  Serious: Yes (Other)
  Sender: FDA-Public Use
  Company Number: US-ASTRAZENECA-2007UW12212

PATIENT
  Age: 16467 Day
  Sex: Female
  Weight: 101.2 kg

DRUGS (29)
  1. SEROQUEL [Suspect]
     Indication: SCHIZOPHRENIA
     Route: 048
     Dates: start: 19990901, end: 20030301
  2. SEROQUEL [Suspect]
     Indication: DRUG INEFFECTIVE
     Route: 048
     Dates: start: 19990901, end: 20030301
  3. SEROQUEL [Suspect]
     Dosage: 25 - 300 MG
     Route: 048
     Dates: start: 20020710
  4. SEROQUEL [Suspect]
     Dosage: 25 - 300 MG
     Route: 048
     Dates: start: 20020710
  5. ABILIFY [Concomitant]
     Dates: start: 20030101
  6. ZYPREXA [Concomitant]
     Dates: start: 19980101, end: 19980101
  7. PREVACID [Concomitant]
     Indication: GASTROOESOPHAGEAL REFLUX DISEASE
     Route: 048
     Dates: start: 19990806
  8. DITROPAN XL [Concomitant]
     Indication: HYPERTONIC BLADDER
     Dosage: 5 - 10 MG
     Route: 048
     Dates: start: 20030131
  9. ELAVIL [Concomitant]
     Indication: SLEEP DISORDER
     Route: 048
     Dates: start: 19990122
  10. ELAVIL [Concomitant]
     Indication: BACK PAIN
     Route: 048
     Dates: start: 19990122
  11. KLONOPIN [Concomitant]
     Dosage: 0.5 - 2 MG
     Route: 048
     Dates: start: 20040826
  12. ALTACE [Concomitant]
     Route: 048
     Dates: start: 20040826
  13. ZOLOFT [Concomitant]
     Indication: DEPRESSION
     Dosage: 50 - 200 MG
     Route: 048
     Dates: start: 20000512
  14. LIPITOR [Concomitant]
     Indication: HYPERLIPIDAEMIA
     Dosage: 10 - 20 MG
     Route: 048
     Dates: start: 20041026
  15. ADVAIR HFA [Concomitant]
     Dosage: 250 MCG - 50 MCG
     Dates: start: 20041217
  16. LEXAPRO [Concomitant]
     Dosage: 10 - 20 MG
     Route: 048
     Dates: start: 20041108
  17. WELLBUTRIN XL [Concomitant]
     Dosage: 150 - 300 MG
     Route: 048
     Dates: start: 20041108
  18. CLIMARA [Concomitant]
     Dates: start: 20000421
  19. VESICARE [Concomitant]
     Dosage: 5 - 10 MG
     Route: 048
     Dates: start: 20041108
  20. DETROL LA [Concomitant]
     Route: 048
     Dates: start: 20040324
  21. BEXTRA [Concomitant]
     Dosage: 10 - 20 MG
     Route: 048
     Dates: start: 20030131
  22. NEXIUM [Concomitant]
     Route: 048
     Dates: start: 20041108
  23. ALBUTEROL [Concomitant]
     Route: 055
     Dates: start: 19981002
  24. ZELNORM [Concomitant]
     Route: 048
     Dates: start: 20041108
  25. TOPAMAX [Concomitant]
     Dosage: 25 - 100 MG
     Route: 048
     Dates: start: 20051021
  26. GLUCOPHAGE [Concomitant]
     Dosage: 500 MG FLUCTUATING
     Route: 048
     Dates: start: 20050407
  27. RIBAVIRIN [Concomitant]
     Indication: HEPATITIS C
     Dosage: 600 - 1200 MG
     Dates: start: 19991013
  28. INTERFERON [Concomitant]
     Indication: HEPATITIS C
     Route: 058
     Dates: start: 19990921
  29. AMBIEN [Concomitant]
     Indication: INSOMNIA
     Dosage: 10 - 12.5 MG
     Route: 048
     Dates: start: 20000407

REACTIONS (13)
  - BONE CYST [None]
  - DIABETES MELLITUS INADEQUATE CONTROL [None]
  - EXOSTOSIS [None]
  - FOOT DEFORMITY [None]
  - FOOT OPERATION [None]
  - GLAUCOMA [None]
  - HEPATITIS C [None]
  - HYPERGLYCAEMIA [None]
  - HYSTERECTOMY [None]
  - NEUROPATHY PERIPHERAL [None]
  - OBESITY [None]
  - PLANTAR FASCIITIS [None]
  - TYPE 2 DIABETES MELLITUS [None]
